FAERS Safety Report 17193328 (Version 2)
Quarter: 2020Q1

REPORT INFORMATION
  Report Type: Spontaneous
  Country: JP (occurrence: JP)
  Receive Date: 20191223
  Receipt Date: 20200127
  Transmission Date: 20200409
  Serious: Yes (Death)
  Sender: FDA-Public Use
  Company Number: JP-009507513-1912JPN010240

PATIENT
  Age: 52 Year
  Sex: Male

DRUGS (2)
  1. REFLEX [Suspect]
     Active Substance: MIRTAZAPINE
     Indication: DEPRESSION
     Dosage: 15 MG
     Route: 048
     Dates: start: 20191024, end: 20191027
  2. BREXPIPRAZOLE [Concomitant]
     Active Substance: BREXPIPRAZOLE
     Indication: PERSECUTORY DELUSION
     Dosage: 1 MILLIGRAM PER DAY
     Route: 048
     Dates: start: 20190608, end: 20191015

REACTIONS (1)
  - Completed suicide [Fatal]

NARRATIVE: CASE EVENT DATE: 20191028
